FAERS Safety Report 21264930 (Version 2)
Quarter: 2024Q3

REPORT INFORMATION
  Report Type: Spontaneous
  Country: DE (occurrence: DE)
  Receive Date: 20220829
  Receipt Date: 20240712
  Transmission Date: 20241017
  Serious: Yes (Other)
  Sender: ASTELLAS
  Company Number: DE-ASTELLAS-2022US030107

PATIENT
  Age: 77 Year
  Sex: Male

DRUGS (2)
  1. ENFORTUMAB VEDOTIN [Suspect]
     Active Substance: ENFORTUMAB VEDOTIN
     Indication: Transitional cell carcinoma
     Dosage: 1.25 MG/KG, CYCLIC, (DAY 1,8,15) REPETATION ON DAY 29
     Route: 065
     Dates: start: 20220201
  2. OSIMERTINIB [Concomitant]
     Active Substance: OSIMERTINIB
     Indication: Product used for unknown indication
     Dosage: UNK UNK, UNKNOWN FREQ.
     Route: 065

REACTIONS (5)
  - Gastric ulcer [Unknown]
  - Erosive oesophagitis [Unknown]
  - Alopecia [Unknown]
  - Rash pruritic [Recovering/Resolving]
  - Dry skin [Unknown]
